FAERS Safety Report 11199929 (Version 2)
Quarter: 2015Q3

REPORT INFORMATION
  Report Type: Report from Study
  Country: JP (occurrence: JP)
  Receive Date: 20150618
  Receipt Date: 20150703
  Transmission Date: 20151125
  Serious: Yes (Other)
  Sender: FDA-Public Use
  Company Number: JP-009507513-1506JPN006987

PATIENT
  Age: 45 Year
  Sex: Female
  Weight: 45.9 kg

DRUGS (10)
  1. DIAZOXIDE [Suspect]
     Active Substance: DIAZOXIDE
     Dosage: 125 MG, QD
     Route: 048
     Dates: start: 20141205, end: 20141214
  2. DIAZOXIDE [Suspect]
     Active Substance: DIAZOXIDE
     Indication: HYPOGLYCAEMIA
     Dosage: 50 MG, QD
     Route: 048
     Dates: start: 20141111, end: 20141111
  3. DIAZOXIDE [Suspect]
     Active Substance: DIAZOXIDE
     Dosage: 275 MG, QD; 75 MG IN THE MORNING AND 200 MG IN THE EVENING
     Route: 048
     Dates: start: 20141127, end: 20141203
  4. RIVOTRIL [Concomitant]
     Active Substance: CLONAZEPAM
     Indication: SCHIZOPHRENIA
     Dosage: 0.5 MG, QD; DIVIDED DOSE FREQUENCY: UNKNOWN; FORMULATION POR
     Route: 048
     Dates: start: 20140926, end: 20141209
  5. DIAZOXIDE [Suspect]
     Active Substance: DIAZOXIDE
     Dosage: 325 MG, QD (75 MG IN THE MORNING AND 250 MG IN THE EVENING)
     Route: 048
     Dates: start: 20141204, end: 20141204
  6. ROZEREM [Concomitant]
     Active Substance: RAMELTEON
     Indication: INSOMNIA
     Dosage: 8 MG, QD; FORMULATION POR; DIVIDED DOSE FREQUENCY: UNKNOWN
     Route: 048
     Dates: start: 20141104
  7. DIAZOXIDE [Suspect]
     Active Substance: DIAZOXIDE
     Dosage: 50 MG, BID
     Route: 048
     Dates: start: 20141112, end: 20141114
  8. KEPPRA [Concomitant]
     Active Substance: LEVETIRACETAM
     Indication: SCHIZOPHRENIA
     Dosage: 1000 MG, QD; FORMULATION POR; DIVIDED DOSE FREQUENCY: UNKNOWN
     Route: 048
     Dates: start: 20140926, end: 20141209
  9. DIAZOXIDE [Suspect]
     Active Substance: DIAZOXIDE
     Dosage: 75 MG, BID
     Route: 048
     Dates: start: 20141115, end: 20141117
  10. DIAZOXIDE [Suspect]
     Active Substance: DIAZOXIDE
     Dosage: 200 MG, QD (75 MG IN THE MORNING, 125 MG IN THE EVENING)
     Route: 048
     Dates: start: 20141118, end: 20141126

REACTIONS (3)
  - Pancreatic operation [Unknown]
  - Schizophrenia [Recovered/Resolved]
  - Cardiac failure [Recovered/Resolved]

NARRATIVE: CASE EVENT DATE: 20141204
